FAERS Safety Report 8512711-7 (Version None)
Quarter: 2012Q3

REPORT INFORMATION
  Report Type: 
  Country: None (occurrence: None)
  Receive Date: 20120716
  Receipt Date: 20120709
  Transmission Date: 20120928
  Serious: Yes (Other)
  Sender: FDA-Public Use
  Company Number: IE-B.I. PHARMACEUTICALS,INC./RIDGEFIELD-2012-UK-00916UK

PATIENT

DRUGS (1)
  1. PRADAXA [Suspect]

REACTIONS (1)
  - PULMONARY EMBOLISM [None]
